FAERS Safety Report 8481744-1 (Version None)
Quarter: 2012Q3

REPORT INFORMATION
  Report Type: 
  Country: None (occurrence: None)
  Receive Date: 20120702
  Receipt Date: 20120627
  Transmission Date: 20120928
  Serious: Yes (Hospitalization, Other)
  Sender: FDA-Public Use
  Company Number: US-ROCHE-1028903

PATIENT
  Sex: Female

DRUGS (1)
  1. NUTROPIN [Suspect]
     Indication: PRODUCT USED FOR UNKNOWN INDICATION
     Dosage: DOSE REPORTED:2.8

REACTIONS (6)
  - AUTOIMMUNE DISORDER [None]
  - MEDICAL DEVICE IMPLANTATION [None]
  - HEADACHE [None]
  - MASS [None]
  - UNEVALUABLE EVENT [None]
  - HEART VALVE REPLACEMENT [None]
